FAERS Safety Report 24238326 (Version 1)
Quarter: 2024Q3

REPORT INFORMATION
  Report Type: Spontaneous
  Country: IT (occurrence: IT)
  Receive Date: 20240822
  Receipt Date: 20240822
  Transmission Date: 20241017
  Serious: Yes (Other)
  Sender: UCB
  Company Number: IT-UCBSA-2024042008

PATIENT
  Age: 68 Year
  Sex: Female

DRUGS (2)
  1. BIMEKIZUMAB [Suspect]
     Active Substance: BIMEKIZUMAB
     Indication: Pustular psoriasis
     Dosage: 320 MILLIGRAM, EV 4 WEEKS FOR THE FIRST 16 WEEKS AND THEN EVERY 8 WEEKS
  2. ACITRETIN [Suspect]
     Active Substance: ACITRETIN
     Indication: Pustular psoriasis
     Dosage: 10 MILLIGRAM, ONCE DAILY (QD)

REACTIONS (2)
  - Pemphigoid [Recovered/Resolved]
  - Off label use [Unknown]
